FAERS Safety Report 25250553 (Version 1)
Quarter: 2025Q2

REPORT INFORMATION
  Report Type: Spontaneous
  Country: US (occurrence: US)
  Receive Date: 20250429
  Receipt Date: 20250429
  Transmission Date: 20250717
  Serious: Yes (Hospitalization)
  Sender: DOMPE FARMACEUTICI
  Company Number: US-FARMAPROD-202504-1309

PATIENT
  Sex: Female
  Weight: 72.62 kg

DRUGS (26)
  1. OXERVATE [Suspect]
     Active Substance: CENEGERMIN-BKBJ
     Indication: Neurotrophic keratopathy
     Route: 047
     Dates: start: 20250312
  2. CARBAMAZEPINE [Concomitant]
     Active Substance: CARBAMAZEPINE
  3. MELATONIN [Concomitant]
     Active Substance: MELATONIN
  4. VALACYCLOVIR [Concomitant]
     Active Substance: VALACYCLOVIR HYDROCHLORIDE
  5. VERAPAMIL [Concomitant]
     Active Substance: VERAPAMIL HYDROCHLORIDE
  6. LEVOTHYROXINE SODIUM [Concomitant]
     Active Substance: LEVOTHYROXINE SODIUM
  7. FAMOTIDINE [Concomitant]
     Active Substance: FAMOTIDINE
  8. METHOCARBAMOL [Concomitant]
     Active Substance: METHOCARBAMOL
  9. VITAMIN D2 [Concomitant]
     Active Substance: ERGOCALCIFEROL
  10. PREVACID [Concomitant]
     Active Substance: LANSOPRAZOLE
  11. SOLIFENACIN SUCCINATE [Concomitant]
     Active Substance: SOLIFENACIN SUCCINATE
  12. LIDOCAINE [Concomitant]
     Active Substance: LIDOCAINE
  13. ESTRADIOL [Concomitant]
     Active Substance: ESTRADIOL
  14. AJOVY [Concomitant]
     Active Substance: FREMANEZUMAB-VFRM
  15. ACETAMINOPHEN [Concomitant]
     Active Substance: ACETAMINOPHEN
  16. TRIAMCINOLONE ACETONIDE [Concomitant]
     Active Substance: TRIAMCINOLONE ACETONIDE
  17. ELIQUIS [Concomitant]
     Active Substance: APIXABAN
  18. CANDESARTAN CILEXETIL [Concomitant]
     Active Substance: CANDESARTAN CILEXETIL
  19. CARVEDILOL [Concomitant]
     Active Substance: CARVEDILOL
  20. FUROSEMIDE [Concomitant]
     Active Substance: FUROSEMIDE
  21. CELECOXIB [Concomitant]
     Active Substance: CELECOXIB
  22. VISION FORMULA WITH LUTEIN [Concomitant]
  23. FLUCONAZOLE [Concomitant]
     Active Substance: FLUCONAZOLE
  24. TRAZODONE HCL [Concomitant]
     Active Substance: TRAZODONE HYDROCHLORIDE
  25. POTASSIUM CHLORIDE [Concomitant]
     Active Substance: POTASSIUM CHLORIDE
  26. LORAZEPAM [Concomitant]
     Active Substance: LORAZEPAM

REACTIONS (4)
  - Hospitalisation [Unknown]
  - Vision blurred [Unknown]
  - Therapy interrupted [Unknown]
  - Illness [Unknown]
